FAERS Safety Report 8512442-3 (Version None)
Quarter: 2012Q2

REPORT INFORMATION
  Report Type: 
  Country: None (occurrence: None)
  Receive Date: 20120406
  Receipt Date: 20111208
  Transmission Date: 20120825
  Serious: Yes (Hospitalization)
  Sender: FDA-Public Use
  Company Number: US-CYPR-2011-000099

PATIENT
  Sex: Male
  Weight: 104 kg

DRUGS (31)
  1. LASIX [Concomitant]
  2. AMARYL [Concomitant]
  3. ROCEPHIN [Concomitant]
  4. VERSED [Concomitant]
  5. DAYPRO [Concomitant]
  6. ACEBUTOLOL [Concomitant]
  7. FENTANYL [Concomitant]
  8. CYPER STENT (1) [Concomitant]
  9. NEURONTIN [Concomitant]
  10. HUMIRA [Concomitant]
  11. ACTOS [Concomitant]
  12. TRICOR [Concomitant]
  13. NITROGLYCERIN [Concomitant]
  14. DICLOXACILLIN [Concomitant]
  15. METFORMIN HYDROCHLORIDE [Concomitant]
  16. POTASSIUM CHLORIDE [Concomitant]
  17. NORFLEX [Concomitant]
  18. CLOPIDOGREL [Suspect]
     Indication: ANTIPLATELET THERAPY
     Dosage: 75 MG ORAL
     Route: 048
     Dates: start: 20101013
  19. ZETIA [Concomitant]
  20. CYPHER STENT (2) [Concomitant]
  21. SINGULAIR [Concomitant]
  22. LEXAPRO [Concomitant]
  23. LANOXIN [Concomitant]
  24. ULTRAM [Concomitant]
  25. LOFIBRA [Concomitant]
  26. PERCOCET [Concomitant]
  27. CYPHER STENT (3) [Concomitant]
  28. ASPIRIN [Suspect]
     Indication: CORONARY ARTERY DISEASE
     Dosage: 325 MG ORAL
     Route: 048
     Dates: start: 20091007
  29. BENICAR [Concomitant]
  30. CLONAZEPAM [Concomitant]
  31. FERROUS SULFATE TAB [Concomitant]

REACTIONS (1)
  - RENAL FAILURE ACUTE [None]
